FAERS Safety Report 9639166 (Version 2)
Quarter: 2015Q2

REPORT INFORMATION
  Report Type: Spontaneous
  Country: JP (occurrence: JP)
  Receive Date: 20131022
  Receipt Date: 20150521
  Transmission Date: 20150821
  Serious: Yes (Hospitalization)
  Sender: FDA-Public Use
  Company Number: PHHY2013JP114269

PATIENT
  Age: 69 Year
  Sex: Male

DRUGS (1)
  1. METHOTREXATE [Suspect]
     Active Substance: METHOTREXATE
     Indication: RHEUMATOID ARTHRITIS
     Route: 065

REACTIONS (6)
  - Hepatic lesion [Unknown]
  - Lymphocytic infiltration [Unknown]
  - Hepatic neoplasm [Recovering/Resolving]
  - Lymphoproliferative disorder [Unknown]
  - Epstein-Barr virus infection [Unknown]
  - Hepatic fibrosis [Unknown]
